FAERS Safety Report 5751483-6 (Version None)
Quarter: 2008Q2

REPORT INFORMATION
  Report Type: 
  Country: None (occurrence: None)
  Receive Date: 20080527
  Receipt Date: 20080514
  Transmission Date: 20081010
  Serious: Yes (Other)
  Sender: FDA-Public Use
  Company Number: 2008BI010627

PATIENT
  Age: 40 Year
  Sex: Female

DRUGS (7)
  1. AVONEX [Suspect]
     Indication: MULTIPLE SCLEROSIS
     Dosage: 30 UG; IM
     Route: 030
     Dates: start: 20000101, end: 20080319
  2. CELEXA [Concomitant]
  3. ZANAFLEX [Concomitant]
  4. BACLOFEN [Concomitant]
  5. IBUROFEN [Concomitant]
  6. CLONAZEPAM [Concomitant]
  7. ADDERALL 10 [Concomitant]

REACTIONS (4)
  - DEPRESSION [None]
  - HYPERTENSION [None]
  - PITUITARY TUMOUR BENIGN [None]
  - SJOGREN'S SYNDROME [None]
